FAERS Safety Report 8175119-2 (Version None)
Quarter: 2012Q1

REPORT INFORMATION
  Report Type: 
  Country: None (occurrence: None)
  Receive Date: 20120229
  Receipt Date: 20120223
  Transmission Date: 20120608
  Serious: Yes (Hospitalization)
  Sender: FDA-Public Use
  Company Number: PHHY2012KR007156

PATIENT
  Sex: Male

DRUGS (5)
  1. ANTIBIOTICS [Concomitant]
  2. EXJADE [Suspect]
     Indication: IRON OVERLOAD
     Dosage: UNK UKN, UNK
     Route: 048
     Dates: start: 20110808
  3. DICLOFENAC SODIUM [Concomitant]
  4. URSODIOL [Concomitant]
  5. IMMUNOSUPPRESSANTS [Concomitant]

REACTIONS (3)
  - OSTEONECROSIS [None]
  - PYREXIA [None]
  - OSTEOARTHRITIS [None]
